FAERS Safety Report 9611076 (Version 1)
Quarter: 2013Q4

REPORT INFORMATION
  Report Type: Spontaneous
  Country: JP (occurrence: JP)
  Receive Date: 20131009
  Receipt Date: 20131009
  Transmission Date: 20140711
  Serious: Yes (Death, Hospitalization, Other)
  Sender: FDA-Public Use
  Company Number: JP-SPECTRUM PHARMACEUTICALS, INC.-13-F-JP-00274

PATIENT
  Sex: 0

DRUGS (4)
  1. FLUOROURACIL [Suspect]
     Indication: HEAD AND NECK CANCER
     Dosage: 600 MG/M2, CONTINUOUS 24-H INFUSION FOR 4 DAYS
     Route: 042
  2. DOCETAXEL [Suspect]
     Indication: HEAD AND NECK CANCER
     Dosage: 60 MG/M2, 1-H INFUSION
     Route: 042
  3. CISPLATIN [Suspect]
     Indication: HEAD AND NECK CANCER
     Dosage: 60 MG/M2, SINGLE
     Route: 042
  4. CARBOPLATIN [Suspect]
     Indication: HEAD AND NECK CANCER
     Dosage: AT AN AREA UNDER THE CURVE OF FIVE
     Route: 042

REACTIONS (8)
  - Febrile neutropenia [Unknown]
  - Death [Fatal]
  - Sepsis [Unknown]
  - Septic shock [Unknown]
  - Renal impairment [Unknown]
  - Neutropenia [Unknown]
  - Neutropenia [Unknown]
  - Gastrointestinal disorder [Unknown]
